FAERS Safety Report 9868591 (Version 3)
Quarter: 2014Q1

REPORT INFORMATION
  Report Type: Spontaneous
  Country: US (occurrence: US)
  Receive Date: 20140204
  Receipt Date: 20140313
  Transmission Date: 20141002
  Serious: No
  Sender: FDA-Public Use
  Company Number: US-PFIZER INC-2014028256

PATIENT
  Age: 60 Year
  Sex: Female

DRUGS (2)
  1. ZITHROMAX [Suspect]
     Indication: NASOPHARYNGITIS
     Dosage: UNK
     Dates: start: 20131230, end: 20140103
  2. VICTOZA [Suspect]
     Dosage: UNK

REACTIONS (2)
  - Vomiting [Unknown]
  - Off label use [Unknown]
